FAERS Safety Report 5391588-5 (Version None)
Quarter: 2007Q3

REPORT INFORMATION
  Report Type: 
  Country: None (occurrence: None)
  Receive Date: 20070719
  Receipt Date: 20070710
  Transmission Date: 20080115
  Serious: Yes (Other)
  Sender: FDA-Public Use
  Company Number: US-PFIZER INC-2007056713

PATIENT
  Sex: Female

DRUGS (3)
  1. AROMASIN [Suspect]
     Indication: BREAST CANCER
     Dosage: FREQ:1 DOSE DAILY
     Route: 048
     Dates: start: 20070508, end: 20070625
  2. AROMASIN [Suspect]
  3. LUPRON [Suspect]
     Indication: BREAST CANCER
     Route: 030

REACTIONS (1)
  - ATRIAL FIBRILLATION [None]
